FAERS Safety Report 10812237 (Version 1)
Quarter: 2015Q1

REPORT INFORMATION
  Report Type: Spontaneous
  Country: AT (occurrence: AT)
  Receive Date: 20150218
  Receipt Date: 20150218
  Transmission Date: 20150721
  Serious: Yes (Death, Life-Threatening, Other)
  Sender: FDA-Public Use
  Company Number: AT-ACCORD-028658

PATIENT
  Age: 81 Year
  Sex: Male

DRUGS (3)
  1. DIAZEPAM. [Suspect]
     Active Substance: DIAZEPAM
  2. BROMAZEPAM [Suspect]
     Active Substance: BROMAZEPAM
  3. TRAMADOL/TRAMADOL HYDROCHLORIDE [Suspect]
     Active Substance: TRAMADOL HYDROCHLORIDE

REACTIONS (8)
  - Loss of consciousness [Not Recovered/Not Resolved]
  - Suicidal ideation [Unknown]
  - Therapy cessation [None]
  - No therapeutic response [None]
  - Dyspnoea [None]
  - Refusal of treatment by patient [None]
  - Toxicity to various agents [Fatal]
  - Anxiety [None]
